FAERS Safety Report 8156050-5 (Version None)
Quarter: 2012Q1

REPORT INFORMATION
  Report Type: 
  Country: None (occurrence: None)
  Receive Date: 20120222
  Receipt Date: 20120210
  Transmission Date: 20120608
  Serious: Yes (Other)
  Sender: FDA-Public Use
  Company Number: US-ELI_LILLY_AND_COMPANY-US201202003497

PATIENT
  Age: 69 Year
  Sex: Female

DRUGS (2)
  1. CYMBALTA [Suspect]
     Indication: GENERALISED ANXIETY DISORDER
     Dosage: 30 MG, QD
     Dates: start: 20090101
  2. CYMBALTA [Suspect]
     Dosage: 60 MG, QD

REACTIONS (7)
  - FALL [None]
  - GLOSSITIS [None]
  - GLOSSODYNIA [None]
  - RETINAL TEAR [None]
  - THROAT LESION [None]
  - JOINT INJURY [None]
  - JOINT SWELLING [None]
